FAERS Safety Report 19268480 (Version 1)
Quarter: 2021Q2

REPORT INFORMATION
  Report Type: Spontaneous
  Country: US (occurrence: US)
  Receive Date: 20210517
  Receipt Date: 20210517
  Transmission Date: 20210717
  Serious: Yes (Other)
  Sender: FDA-Public Use
  Company Number: None

PATIENT

DRUGS (2)
  1. DELTA?8 TETRAHYDROCANNIBINOL [Suspect]
     Active Substance: .DELTA.8-TETRAHYDROCANNABINOL\HERBALS
  2. ZAR COSMIC CHOCOLATE CANDY BAR WITH PEANUT BUTTER [DELTA?8?THC] [Suspect]
     Active Substance: .DELTA.8-TETRAHYDROCANNABINOL\HERBALS

REACTIONS (1)
  - Adverse drug reaction [None]

NARRATIVE: CASE EVENT DATE: 20210417
